FAERS Safety Report 11336872 (Version 1)
Quarter: 2015Q3

REPORT INFORMATION
  Report Type: Spontaneous
  Country: US (occurrence: US)
  Receive Date: 20150804
  Receipt Date: 20150804
  Transmission Date: 20151125
  Serious: No
  Sender: FDA-Public Use
  Company Number: US-PFIZER INC-2015248535

PATIENT
  Sex: Female
  Weight: 68 kg

DRUGS (1)
  1. NITROGLYCERIN. [Suspect]
     Active Substance: NITROGLYCERIN
     Indication: MIGRAINE
     Dosage: UNK

REACTIONS (2)
  - Nausea [Unknown]
  - Product use issue [Unknown]
